FAERS Safety Report 10191486 (Version 2)
Quarter: 2014Q2

REPORT INFORMATION
  Report Type: Spontaneous
  Country: JP (occurrence: JP)
  Receive Date: 20140523
  Receipt Date: 20140617
  Transmission Date: 20141212
  Serious: Yes (Hospitalization)
  Sender: FDA-Public Use
  Company Number: PHHY2014JP062231

PATIENT
  Age: 59 Year
  Sex: Female

DRUGS (3)
  1. NEORAL [Suspect]
     Indication: PEMPHIGUS
     Dosage: UNK UKN, UNK
     Route: 048
  2. NEORAL [Suspect]
     Indication: OFF LABEL USE
  3. CORTICOSTEROIDS [Suspect]
     Dosage: UNK UKN, UNK

REACTIONS (1)
  - Osteonecrosis [Unknown]
